FAERS Safety Report 19274270 (Version 1)
Quarter: 2021Q2

REPORT INFORMATION
  Report Type: Spontaneous
  Country: US (occurrence: US)
  Receive Date: 20210519
  Receipt Date: 20210519
  Transmission Date: 20210717
  Serious: No
  Sender: FDA-Public Use
  Company Number: None

PATIENT
  Age: 64 Year
  Sex: Female
  Weight: 98.91 kg

DRUGS (1)
  1. BENZTROPINE. [Suspect]
     Active Substance: BENZTROPINE
     Indication: TREMOR
     Dates: start: 20210212, end: 20210325

REACTIONS (6)
  - Amnesia [None]
  - Judgement impaired [None]
  - Cognitive disorder [None]
  - Disturbance in attention [None]
  - Memory impairment [None]
  - Confusional state [None]

NARRATIVE: CASE EVENT DATE: 20210212
